FAERS Safety Report 9519096 (Version 1)
Quarter: 2013Q1

REPORT INFORMATION
  Report Type: Spontaneous
  Country: US (occurrence: None)
  Receive Date: 20130305
  Receipt Date: 20130305
  Transmission Date: 20140127
  Serious: Yes (Other)
  Sender: FDA-Public Use
  Company Number: 163-21880-12011039

PATIENT
  Age: 65 Year
  Sex: Female
  Weight: 51.26 kg

DRUGS (13)
  1. REVLIMID (LENALIDOMIDE) (CAPSULES) [Suspect]
     Indication: PLASMA CELL MYELOMA
     Dosage: 25 MG, D1-D21, PO
     Route: 048
     Dates: start: 20110922, end: 20120103
  2. VELCADE (BORTEZOIB) (UNKNOWN) [Concomitant]
  3. DECADRON [Concomitant]
  4. ASA (ACETYLSALICYLIC ACID) (UNKNOWN) [Concomitant]
  5. PRADAXA (DABIGATRAN ETEXILATE MESILATE) (UNKNOWN) [Concomitant]
  6. TRICOR (FENOFIBRATE) (UNKNOWN) [Concomitant]
  7. ATIVAN (LORAZEPAM) (UNKNOWN) [Concomitant]
  8. MICRO-K (POTASSIUM CHLORIDE) (UNKNOWN) [Concomitant]
  9. COMPAZINE (PROCHLORPERAZINE EDISYLATE) (UNKNOWN) [Concomitant]
  10. SEROQUEL (QUETIAPINE FUMARATE) (UNKNOWN)? [Concomitant]
  11. ZOMETA (ZOLEDRONIC ACID) (UNKNOWN) [Concomitant]
  12. VALTREX (VALACICLOVIR HYDROCHLORIDE) (UNKNOWN) [Concomitant]
  13. SEPTRA DS (BACTRIM) (UNKNOWN) [Concomitant]

REACTIONS (6)
  - Pancytopenia [None]
  - Haemoglobin decreased [None]
  - White blood cell count decreased [None]
  - Nausea [None]
  - Vomiting [None]
  - Asthenia [None]
